FAERS Safety Report 5618569-8 (Version None)
Quarter: 2008Q1

REPORT INFORMATION
  Report Type: 
  Country: None (occurrence: None)
  Receive Date: 20080207
  Receipt Date: 20080130
  Transmission Date: 20080703
  Serious: Yes (Death)
  Sender: FDA-Public Use
  Company Number: PL-BAYER-200713386GDS

PATIENT
  Age: 71 Year
  Sex: Male
  Weight: 68 kg

DRUGS (7)
  1. SORAFENIB [Suspect]
     Indication: METASTATIC RENAL CELL CARCINOMA
     Route: 048
     Dates: start: 20070404, end: 20070528
  2. ENARENAL [Concomitant]
     Indication: DRUG USE FOR UNKNOWN INDICATION
     Route: 065
  3. DURAGESIC-100 [Concomitant]
     Indication: DRUG USE FOR UNKNOWN INDICATION
     Route: 065
  4. GLUCOBAY [Concomitant]
     Indication: DIABETES MELLITUS
     Route: 065
  5. GLUFORMIN [Concomitant]
     Indication: DIABETES MELLITUS
     Route: 065
  6. BIOSOTAL [Concomitant]
     Indication: ARRHYTHMIA
     Route: 065
  7. MONONIT [Concomitant]
     Indication: ARRHYTHMIA
     Route: 065

REACTIONS (4)
  - CARDIOVASCULAR INSUFFICIENCY [None]
  - DEATH [None]
  - DISEASE PROGRESSION [None]
  - GENERAL PHYSICAL HEALTH DETERIORATION [None]
